FAERS Safety Report 6329062-1 (Version None)
Quarter: 2009Q3

REPORT INFORMATION
  Report Type: 
  Country: None (occurrence: None)
  Receive Date: 20090824
  Receipt Date: 20090824
  Transmission Date: 20100115
  Serious: Yes (Other)
  Sender: FDA-Public Use
  Company Number: None

PATIENT
  Age: 34 Year
  Sex: Female
  Weight: 49.8957 kg

DRUGS (1)
  1. YAZ [Suspect]
     Indication: CONTRACEPTION
     Dosage: ONE PILL DAILY PO
     Route: 048
     Dates: start: 20081120, end: 20090520

REACTIONS (9)
  - ANXIETY [None]
  - DEPRESSION [None]
  - HEPATIC CYST [None]
  - INSOMNIA [None]
  - MENTAL DISORDER [None]
  - MOOD SWINGS [None]
  - OVARIAN CYST RUPTURED [None]
  - PANIC ATTACK [None]
  - VOMITING [None]
